FAERS Safety Report 8368368-1 (Version None)
Quarter: 2012Q2

REPORT INFORMATION
  Report Type: 
  Country: None (occurrence: None)
  Receive Date: 20120517
  Receipt Date: 20120507
  Transmission Date: 20120825
  Serious: Yes (Hospitalization, Other)
  Sender: FDA-Public Use
  Company Number: US-ELI_LILLY_AND_COMPANY-US201111004232

PATIENT
  Sex: Female
  Weight: 75.51 kg

DRUGS (26)
  1. FORTEO [Suspect]
     Indication: OSTEOPOROSIS
     Dosage: 20 UG, QD
     Route: 065
     Dates: start: 20101119
  2. FORTEO [Suspect]
     Dosage: 20 UG, QD
  3. CODEINE PHOSPHATE [Concomitant]
     Indication: PAIN
     Dosage: 3 DF, PRN
  4. NEURONTIN [Concomitant]
     Dosage: 300 MG, EACH EVENING
  5. CALCIUM [Concomitant]
  6. FORTEO [Suspect]
     Dosage: 20 UG, QD
     Route: 065
  7. MULTI-VITAMIN [Concomitant]
  8. SYNTHROID [Concomitant]
     Indication: HYPOTHYROIDISM
     Dosage: 25 UG, QD
  9. ENABLEX                            /01760401/ [Concomitant]
     Dosage: 15 MG, UNK
  10. LEVOTHYROXINE SODIUM [Concomitant]
     Dosage: 0.25 MG, UNK
  11. GLUCOSAMINE [Concomitant]
  12. MOBIC [Concomitant]
     Dosage: 15 MG, UNK
  13. SYNTHROID [Concomitant]
     Dosage: 25 UG, QD
  14. VITAMIN D [Concomitant]
  15. NEUROTIN                           /00949202/ [Concomitant]
     Dosage: 300 MG, EACH EVENING
  16. FISH [Concomitant]
  17. BORAGE OIL [Concomitant]
     Dosage: UNK, QD
  18. VITAMIN B COMPLEX CAP [Concomitant]
  19. FORTEO [Suspect]
     Dosage: 20 UG, QD
     Route: 065
  20. LIPITOR [Concomitant]
     Dosage: 10 MG, UNK
  21. VITAMIN E [Concomitant]
  22. LYRICA [Concomitant]
     Dosage: 75 MG, TID
  23. FISH OIL [Concomitant]
  24. GABAPENTIN [Concomitant]
  25. FLAXSEED OIL [Concomitant]
  26. TRAMADOL HYDROCHLORIDE [Concomitant]

REACTIONS (6)
  - GAIT DISTURBANCE [None]
  - HEARING IMPAIRED [None]
  - KNEE ARTHROPLASTY [None]
  - ARTHROPATHY [None]
  - PAIN [None]
  - BLOOD COUNT ABNORMAL [None]
